FAERS Safety Report 9315599 (Version 1)
Quarter: 2013Q2

REPORT INFORMATION
  Report Type: Spontaneous
  Country: US (occurrence: US)
  Receive Date: 20130529
  Receipt Date: 20130529
  Transmission Date: 20140414
  Serious: No
  Sender: FDA-Public Use
  Company Number: US-009507513-1305USA016616

PATIENT
  Sex: Male

DRUGS (1)
  1. MIRALAX [Suspect]
     Indication: COLONOSCOPY
     Dosage: UNK, TID
     Route: 048
     Dates: start: 201304

REACTIONS (5)
  - Abdominal pain [Unknown]
  - Gastric disorder [Unknown]
  - Frequent bowel movements [Unknown]
  - Incorrect drug administration duration [Unknown]
  - Off label use [Unknown]
